FAERS Safety Report 8531316-5 (Version None)
Quarter: 2012Q3

REPORT INFORMATION
  Report Type: 
  Country: None (occurrence: None)
  Receive Date: 20120723
  Receipt Date: 20120711
  Transmission Date: 20120928
  Serious: Yes (Other)
  Sender: FDA-Public Use
  Company Number: JP-VERTEX PHARMACEUTICALS INC.-AE-2012-010550

PATIENT
  Age: 52 Year
  Sex: Male

DRUGS (10)
  1. PEG-INTRON [Concomitant]
     Route: 058
     Dates: start: 20120608
  2. REBETOL [Concomitant]
     Route: 048
     Dates: start: 20120427, end: 20120531
  3. TELAVIC (TELAPREVIR) [Suspect]
     Indication: HEPATITIS C
     Route: 048
     Dates: start: 20120323, end: 20120531
  4. RABEPRAZOLE SODIUM [Concomitant]
     Route: 048
  5. MUCOSTA [Concomitant]
     Route: 048
  6. PEG-INTRON [Concomitant]
     Indication: HEPATITIS C
     Route: 058
     Dates: start: 20120323, end: 20120525
  7. REBETOL [Concomitant]
     Indication: HEPATITIS C
     Route: 048
     Dates: start: 20120323, end: 20120426
  8. TELAVIC (TELAPREVIR) [Suspect]
     Route: 048
     Dates: start: 20120608
  9. REBETOL [Concomitant]
     Route: 048
     Dates: start: 20120608
  10. ZOLPIDEM [Concomitant]
     Route: 048

REACTIONS (3)
  - WHITE BLOOD CELL COUNT DECREASED [None]
  - HAEMOGLOBIN DECREASED [None]
  - ANAEMIA [None]
